FAERS Safety Report 7431850-5 (Version None)
Quarter: 2011Q2

REPORT INFORMATION
  Report Type: 
  Country: None (occurrence: None)
  Receive Date: 20110420
  Receipt Date: 20110420
  Transmission Date: 20111010
  Serious: Yes (Disabling)
  Sender: FDA-Public Use
  Company Number: None

PATIENT
  Sex: Female
  Weight: 79.8331 kg

DRUGS (1)
  1. TINDAMAX [Suspect]
     Dosage: SEE ATTACHED

REACTIONS (11)
  - PRURITUS [None]
  - ARTHROPATHY [None]
  - DYSPNOEA [None]
  - INCORRECT DRUG ADMINISTRATION DURATION [None]
  - OFF LABEL USE [None]
  - NEURODERMATITIS [None]
  - MUSCLE FATIGUE [None]
  - INSOMNIA [None]
  - MAJOR DEPRESSION [None]
  - NEUROPATHY PERIPHERAL [None]
  - RASH [None]
